FAERS Safety Report 4378202-2 (Version None)
Quarter: 2004Q2

REPORT INFORMATION
  Report Type: 
  Country: None (occurrence: None)
  Receive Date: 20040609
  Receipt Date: 20040525
  Transmission Date: 20050107
  Serious: Yes (Other)
  Sender: FDA-Public Use
  Company Number: USA040568556

PATIENT
  Age: 77 Year
  Sex: Female

DRUGS (10)
  1. EVISTA [Suspect]
     Indication: OSTEOPOROSIS
  2. FORTEO [Suspect]
     Indication: OSTEOPOROSIS
     Dates: start: 20031201
  3. SPIRONOLACTONE [Concomitant]
  4. VIOXX [Concomitant]
  5. ZOLOFT [Concomitant]
  6. LEVOXYL [Concomitant]
  7. ADVAIR DISKUS 100/50 [Concomitant]
  8. MABUTEROL [Concomitant]
  9. HYDROCODONE [Concomitant]
  10. PREDNISONE [Concomitant]

REACTIONS (7)
  - ARTHRALGIA [None]
  - CONTUSION [None]
  - FALL [None]
  - MUSCLE CRAMP [None]
  - PAIN IN EXTREMITY [None]
  - PHARMACEUTICAL PRODUCT COMPLAINT [None]
  - SPINAL FRACTURE [None]
